FAERS Safety Report 4383142-9 (Version None)
Quarter: 2004Q2

REPORT INFORMATION
  Report Type: 
  Country: None (occurrence: None)
  Receive Date: 20040618
  Receipt Date: 20040610
  Transmission Date: 20050107
  Serious: Yes (Hospitalization)
  Sender: FDA-Public Use
  Company Number: STA-AE-04-MTX-188

PATIENT
  Age: 45 Year
  Sex: Female

DRUGS (2)
  1. RHEUMATREX [Suspect]
     Indication: RHEUMATOID ARTHRITIS
     Dosage: 6 MG 1X PER WK, ORAL
     Route: 048
     Dates: start: 20031002, end: 20040401
  2. PREDNISOLONE [Concomitant]

REACTIONS (3)
  - BONE MARROW DEPRESSION [None]
  - GRANULOCYTOPENIA [None]
  - HEPATITIS ACUTE [None]
